FAERS Safety Report 14745613 (Version 1)
Quarter: 2018Q2

REPORT INFORMATION
  Report Type: Spontaneous
  Country: US (occurrence: US)
  Receive Date: 20180405
  Receipt Date: 20180405
  Transmission Date: 20180711
  Serious: No
  Sender: FDA-Public Use
  Company Number: None

PATIENT
  Age: 90 Year
  Sex: Male
  Weight: 90.72 kg

DRUGS (1)
  1. CAPECITABINE. [Suspect]
     Active Substance: CAPECITABINE
     Indication: COLON CANCER
     Dosage: ?          OTHER FREQUENCY:3TBID FOR 7 DAYS O;?
     Route: 048
     Dates: start: 20160718

REACTIONS (2)
  - Disease progression [None]
  - Adverse drug reaction [None]

NARRATIVE: CASE EVENT DATE: 20180226
